FAERS Safety Report 5898304-9 (Version None)
Quarter: 2008Q3

REPORT INFORMATION
  Report Type: 
  Country: None (occurrence: None)
  Receive Date: 20080925
  Receipt Date: 20070830
  Transmission Date: 20090109
  Serious: No
  Sender: FDA-Public Use
  Company Number: A0677766A

PATIENT
  Age: 70 Year
  Sex: Female

DRUGS (7)
  1. WELLBUTRIN XL [Suspect]
     Dosage: 150MG PER DAY
     Route: 048
     Dates: start: 20070828, end: 20070829
  2. SYNTHROID [Concomitant]
  3. SINGULAIR [Concomitant]
  4. FLOVENT [Concomitant]
  5. CALCIUM GLUCONATE [Concomitant]
  6. MULTI-VITAMIN [Concomitant]
  7. ACTONEL [Concomitant]

REACTIONS (3)
  - CHEILITIS [None]
  - MOUTH ULCERATION [None]
  - NASAL ULCER [None]
